FAERS Safety Report 9312767 (Version 1)
Quarter: 2013Q2

REPORT INFORMATION
  Report Type: Spontaneous
  Country: US (occurrence: US)
  Receive Date: 20130528
  Receipt Date: 20130528
  Transmission Date: 20140414
  Serious: Yes (Hospitalization)
  Sender: FDA-Public Use
  Company Number: US-GILEAD-2013-0075673

PATIENT
  Sex: Male

DRUGS (1)
  1. LETAIRIS [Suspect]
     Indication: PRODUCT USED FOR UNKNOWN INDICATION
     Dosage: 5 MG, QD
     Dates: start: 20120919

REACTIONS (5)
  - Syncope [Unknown]
  - Haematochezia [Unknown]
  - International normalised ratio increased [Unknown]
  - Asthenia [Unknown]
  - Haematocrit decreased [Unknown]
